FAERS Safety Report 26042482 (Version 1)
Quarter: 2025Q4

REPORT INFORMATION
  Report Type: Spontaneous
  Country: US (occurrence: US)
  Receive Date: 20251113
  Receipt Date: 20251113
  Transmission Date: 20260118
  Serious: No
  Sender: PFIZER
  Company Number: US-PFIZER INC-202500222331

PATIENT
  Age: 82 Year
  Sex: Female

DRUGS (1)
  1. IBRANCE [Suspect]
     Active Substance: PALBOCICLIB
     Indication: Breast cancer female
     Dosage: 75 MG, CYCLIC (1 TABLET (75 MG) DAILY FOR 21 DAYS, THEN 7 DAYS OFF EVERY 28 DAYS)

REACTIONS (3)
  - Fatigue [Unknown]
  - Dyspnoea [Unknown]
  - Alopecia [Unknown]
